FAERS Safety Report 6992791-0 (Version None)
Quarter: 2010Q3

REPORT INFORMATION
  Report Type: 
  Country: None (occurrence: None)
  Receive Date: 20100917
  Receipt Date: 20100913
  Transmission Date: 20110219
  Serious: Yes (Hospitalization)
  Sender: FDA-Public Use
  Company Number: A0880839A

PATIENT
  Age: 60 Year
  Sex: Female

DRUGS (11)
  1. COREG [Suspect]
     Dosage: 25MG TWICE PER DAY
     Route: 048
     Dates: start: 20040901
  2. LISINOPRIL [Concomitant]
  3. FUROSEMIDE [Concomitant]
  4. JANUVIA [Concomitant]
  5. NEXIUM [Concomitant]
  6. ZETIA [Concomitant]
  7. METFORMIN HYDROCHLORIDE [Concomitant]
  8. KLOR-CON [Concomitant]
  9. GLUCOTROL XL [Concomitant]
  10. CETIRIZINE HCL [Concomitant]
  11. BYETTA [Concomitant]

REACTIONS (1)
  - HAEMORRHAGIC STROKE [None]
